FAERS Safety Report 11953306 (Version 3)
Quarter: 2016Q4

REPORT INFORMATION
  Report Type: Spontaneous
  Country: GB (occurrence: GB)
  Receive Date: 20160126
  Receipt Date: 20161101
  Transmission Date: 20170206
  Serious: Yes (Hospitalization, Disabling)
  Sender: FDA-Public Use
  Company Number: GB-PFIZER INC-2016035096

PATIENT
  Age: 86 Year
  Sex: Female
  Weight: 62 kg

DRUGS (13)
  1. GLICLAZIDE [Concomitant]
     Active Substance: GLICLAZIDE
     Dosage: 40 MG, 2X/DAY (WITH MEALS)
     Route: 048
  2. HYDROMOL /06335901/ [Concomitant]
     Active Substance: PARAFFIN\WAX, EMULSIFYING
     Indication: DRY SKIN
     Dosage: UNK UNK, AS NEEDED (1 APPLICATION TWICE A DAY AS NECESSARY)
     Route: 061
  3. ALENDRONIC ACID [Concomitant]
     Active Substance: ALENDRONIC ACID
     Dosage: 1 DF, WEEKLY (ON A WEDNESDAY)
  4. PARACETAMOL [Concomitant]
     Active Substance: ACETAMINOPHEN
     Dosage: 2 G, 2X/DAY (EACH DOSE MUST BE TAKEN 4 TO 6 HOURS APART)
     Route: 048
  5. CLOPIDOGREL [Concomitant]
     Active Substance: CLOPIDOGREL BISULFATE
     Dosage: 75 MG, 1X/DAY
     Route: 048
  6. LANSOPRAZOLE. [Concomitant]
     Active Substance: LANSOPRAZOLE
     Dosage: 15 MG, 1X/DAY
     Route: 048
  7. TRAMADOL. [Concomitant]
     Active Substance: TRAMADOL
     Dosage: 50 MG, 4X/DAY
     Route: 048
  8. SENNA /00142201/ [Concomitant]
     Active Substance: SENNA LEAF
     Dosage: 15 MG, 1X/DAY (AT NIGHT)
     Route: 048
  9. PREGABALIN. [Suspect]
     Active Substance: PREGABALIN
     Indication: NEURALGIA
     Dosage: 50 MG, 1X/DAY (AT NIGHT)
     Route: 048
     Dates: start: 20151126, end: 20160106
  10. ATORVASTATIN [Concomitant]
     Active Substance: ATORVASTATIN
     Dosage: 80 MG, 1X/DAY (AT NIGHT)
     Route: 048
  11. DOCUSATE [Concomitant]
     Active Substance: DOCUSATE
  12. ADCAL D3 [Concomitant]
     Active Substance: CALCIUM CARBONATE\CHOLECALCIFEROL
     Dosage: 1 DF, 2X/DAY (AT 12 NOON AND 6PM, TO BE SUCKED OR CHEWED)
     Route: 048
  13. MIRTAZAPINE. [Concomitant]
     Active Substance: MIRTAZAPINE
     Dosage: 45 MG, 1X/DAY (NOCTE)

REACTIONS (3)
  - Mobility decreased [Recovered/Resolved]
  - Bursitis [Recovered/Resolved]
  - Fall [Recovered/Resolved]

NARRATIVE: CASE EVENT DATE: 20151226
